FAERS Safety Report 18830497 (Version 1)
Quarter: 2021Q1

REPORT INFORMATION
  Report Type: Spontaneous
  Country: US (occurrence: US)
  Receive Date: 20210201
  Receipt Date: 20210201
  Transmission Date: 20210419
  Serious: No
  Sender: FDA-Public Use
  Company Number: US-ABBVIE-20K-163-3661489-00

PATIENT
  Age: 66 Year
  Sex: Female
  Weight: 84.44 kg

DRUGS (2)
  1. HUMIRA [Suspect]
     Active Substance: ADALIMUMAB
     Indication: PSORIASIS
     Route: 058
  2. HUMIRA [Suspect]
     Active Substance: ADALIMUMAB
     Indication: PSORIASIS
     Route: 058
     Dates: start: 20201106

REACTIONS (9)
  - Hot flush [Unknown]
  - Injection site haemorrhage [Unknown]
  - Erythema [Unknown]
  - Chest discomfort [Unknown]
  - Wrong technique in product usage process [Recovered/Resolved]
  - Arthritis [Unknown]
  - Dysuria [Unknown]
  - Insomnia [Unknown]
  - Device difficult to use [Unknown]

NARRATIVE: CASE EVENT DATE: 20201105
